FAERS Safety Report 4947214-X (Version None)
Quarter: 2006Q1

REPORT INFORMATION
  Report Type: 
  Country: None (occurrence: None)
  Receive Date: 20060313
  Receipt Date: 20060227
  Transmission Date: 20060701
  Serious: Yes (Other)
  Sender: FDA-Public Use
  Company Number: 2006S1000051

PATIENT
  Age: 39 Year
  Sex: Female
  Weight: 108.8633 kg

DRUGS (5)
  1. SORIATANE [Suspect]
     Indication: PSORIASIS
     Dosage: 10 MG QD PO
     Route: 048
     Dates: start: 20060207, end: 20060221
  2. METOCLOPRAMIDE [Concomitant]
  3. NEXIUM [Concomitant]
  4. DICYCLOMINE [Concomitant]
  5. ENBREL [Concomitant]

REACTIONS (7)
  - ANGIONEUROTIC OEDEMA [None]
  - DRUG ERUPTION [None]
  - ERYTHEMA [None]
  - GASTRIC DISORDER [None]
  - OEDEMA PERIPHERAL [None]
  - PRURITUS [None]
  - THROAT TIGHTNESS [None]
